FAERS Safety Report 21984717 (Version 1)
Quarter: 2023Q1

REPORT INFORMATION
  Report Type: Spontaneous
  Country: AR (occurrence: AR)
  Receive Date: 20230213
  Receipt Date: 20230213
  Transmission Date: 20230418
  Serious: Yes (Other)
  Sender: FDA-Public Use
  Company Number: AR-OEPI8P-950

PATIENT

DRUGS (9)
  1. NERLYNX [Suspect]
     Active Substance: NERATINIB
     Indication: HER2 positive breast cancer
     Dosage: 120 MG DAILY IN THE FIRST WEEK OF TREATMENT.
     Route: 048
     Dates: start: 20221122
  2. NERLYNX [Suspect]
     Active Substance: NERATINIB
     Dosage: 160 MG FROM THE SECOND WEEK.
     Route: 048
  3. NERLYNX [Suspect]
     Active Substance: NERATINIB
     Dosage: 240 MG FROM THE THIRD WEEK ONWARDS. AFTER HAVING GASTROINTESTINAL ISSUES THE PATIENT^S PHYSICIAN IND
     Route: 048
     Dates: start: 20221206
  4. NERLYNX [Suspect]
     Active Substance: NERATINIB
     Dosage: THE PATIENT TOOK 200 MG FOR 3 DAYS AND THEN 240 MG.
     Route: 048
  5. NERLYNX [Suspect]
     Active Substance: NERATINIB
     Dosage: THERAPY INTERVAL: UNK THE PATIENT STATED CONFIRMED SHE WAS TAKING NERLYNX 240 MG SINCE 21. DEC 2022.
     Route: 048
     Dates: start: 20221221, end: 20230125
  6. ANASTROZOLE [Concomitant]
     Active Substance: ANASTROZOLE
     Indication: Product used for unknown indication
     Dosage: UNK
     Route: 048
  7. OMEPRAZOLE [Concomitant]
     Active Substance: OMEPRAZOLE
     Indication: Product used for unknown indication
     Dosage: THERAPY INTERVAL: UNK
  8. MAGNESIUM [Concomitant]
     Active Substance: MAGNESIUM
     Indication: Product used for unknown indication
     Dosage: THERAPY INTERVAL: UNK
  9. POTASSIUM [Concomitant]
     Active Substance: POTASSIUM
     Indication: Product used for unknown indication
     Dosage: THERAPY INTERVAL: UNK

REACTIONS (9)
  - Synovial cyst [Unknown]
  - Splenomegaly [Unknown]
  - Off label use [Unknown]
  - Diarrhoea [Recovering/Resolving]
  - Abdominal pain [Recovered/Resolved]
  - Oedema [Unknown]
  - Chronic lymphocytic leukaemia [Unknown]
  - Lymphadenopathy [Unknown]
  - Chronic lymphocytic leukaemia recurrent [Unknown]

NARRATIVE: CASE EVENT DATE: 20221207
